FAERS Safety Report 23211265 (Version 1)
Quarter: 2023Q4

REPORT INFORMATION
  Report Type: Spontaneous
  Country: US (occurrence: US)
  Receive Date: 20231121
  Receipt Date: 20231121
  Transmission Date: 20240109
  Serious: No
  Sender: FDA-Public Use
  Company Number: US-SA-SAC20231115000778

PATIENT
  Sex: Female
  Weight: 67.58 kg

DRUGS (5)
  1. DUPIXENT [Suspect]
     Active Substance: DUPILUMAB
     Indication: Nasal polyps
     Dosage: 300 MG, QOW
     Route: 058
     Dates: start: 202009
  2. HYALURONIC ACID [Concomitant]
     Active Substance: HYALURONIC ACID
  3. ETODOLAC [Concomitant]
     Active Substance: ETODOLAC
  4. KLONOPIN [Concomitant]
     Active Substance: CLONAZEPAM
  5. PANTOPRAZOLE SODIUM [Concomitant]
     Active Substance: PANTOPRAZOLE SODIUM

REACTIONS (1)
  - Pharyngitis streptococcal [Unknown]
